FAERS Safety Report 23488161 (Version 1)
Quarter: 2024Q1

REPORT INFORMATION
  Report Type: Spontaneous
  Country: US (occurrence: US)
  Receive Date: 20240206
  Receipt Date: 20240206
  Transmission Date: 20240410
  Serious: No
  Sender: FDA-Public Use
  Company Number: US-TPU-TPU-2023-00776

PATIENT
  Age: 79 Year
  Sex: Female

DRUGS (9)
  1. LIDOCAINE PATCH [Suspect]
     Active Substance: LIDOCAINE
     Indication: Arthralgia
     Route: 061
     Dates: start: 202108
  2. LIDOCAINE PATCH [Suspect]
     Active Substance: LIDOCAINE
     Indication: Back pain
  3. GABAPENTIN [Suspect]
     Active Substance: GABAPENTIN
     Indication: Product used for unknown indication
  4. AMBIEN [Suspect]
     Active Substance: ZOLPIDEM TARTRATE
     Indication: Insomnia
  5. IRBESARTAN [Concomitant]
     Active Substance: IRBESARTAN
     Indication: Hypertension
  6. LEVOTHYROXINE [Concomitant]
     Active Substance: LEVOTHYROXINE\LEVOTHYROXINE SODIUM
  7. ASPIRIN [Concomitant]
     Active Substance: ASPIRIN
     Dosage: AT BEDTIME
  8. LIDOCAINE [Concomitant]
     Active Substance: LIDOCAINE
     Indication: Neuropathy peripheral
  9. Vicks Vapo Rab [Concomitant]
     Indication: Neuropathy peripheral

REACTIONS (6)
  - Pain [Unknown]
  - Dizziness [Unknown]
  - Insomnia [Unknown]
  - Somnambulism [Unknown]
  - Weight decreased [Unknown]
  - Alopecia [Unknown]

NARRATIVE: CASE EVENT DATE: 20231201
